FAERS Safety Report 15455416 (Version 1)
Quarter: 2018Q4

REPORT INFORMATION
  Report Type: Spontaneous
  Country: GB (occurrence: GB)
  Receive Date: 20181002
  Receipt Date: 20181002
  Transmission Date: 20190204
  Serious: Yes (Congenital Anomaly, Other)
  Sender: FDA-Public Use
  Company Number: GB-MYLANLABS-2018M1071077

PATIENT
  Sex: Male

DRUGS (3)
  1. METHYLPHENIDATE. [Suspect]
     Active Substance: METHYLPHENIDATE
     Indication: ATTENTION DEFICIT/HYPERACTIVITY DISORDER
     Dosage: 45 MG, QD
     Route: 064
     Dates: start: 20150903
  2. FLUOXETINE [Concomitant]
     Active Substance: FLUOXETINE HYDROCHLORIDE
     Indication: PRODUCT USED FOR UNKNOWN INDICATION
     Dosage: 20 MG, QD
     Route: 064
  3. QUETIAPINE. [Concomitant]
     Active Substance: QUETIAPINE
     Indication: PRODUCT USED FOR UNKNOWN INDICATION
     Dosage: 25 MG, QD
     Route: 064

REACTIONS (6)
  - Foetal exposure during pregnancy [Unknown]
  - Aplasia cutis congenita [Unknown]
  - Ventricular septal defect [Unknown]
  - Congenital pulmonary artery anomaly [Unknown]
  - Congenital arterial malformation [Unknown]
  - Pulmonary artery atresia [Unknown]
